FAERS Safety Report 4493270-5 (Version None)
Quarter: 2004Q4

REPORT INFORMATION
  Report Type: 
  Country: None (occurrence: None)
  Receive Date: 20041104
  Receipt Date: 20041028
  Transmission Date: 20050328
  Serious: Yes (Disabling, Other)
  Sender: FDA-Public Use
  Company Number: 86104003

PATIENT
  Sex: Male

DRUGS (2)
  1. MONISTAT 7 [Suspect]
     Route: 067
  2. GYNE-LOTRIMIN [Concomitant]
     Route: 067

REACTIONS (5)
  - CONGENITAL ANOMALY [None]
  - DRUG EXPOSURE DURING PREGNANCY [None]
  - INGUINAL HERNIA [None]
  - PENIS DISORDER [None]
  - TESTICULAR DISORDER [None]
